FAERS Safety Report 8294338-8 (Version None)
Quarter: 2012Q2

REPORT INFORMATION
  Report Type: 
  Country: None (occurrence: None)
  Receive Date: 20120418
  Receipt Date: 20120410
  Transmission Date: 20120825
  Serious: Yes (Hospitalization)
  Sender: FDA-Public Use
  Company Number: US-BRISTOL-MYERS SQUIBB COMPANY-16510646

PATIENT
  Age: 21 Year
  Sex: Female
  Weight: 55 kg

DRUGS (6)
  1. LORAZEPAM [Concomitant]
  2. NEURONTIN [Concomitant]
  3. DICLOFENAC [Concomitant]
  4. IPILIMUMAB [Suspect]
     Indication: SARCOMA
     Dosage: LAST ADMIN DT 22DEC11
     Route: 042
     Dates: start: 20111130
  5. METHYLPHENIDATE [Concomitant]
  6. NEOCON [Concomitant]

REACTIONS (4)
  - AUTOIMMUNE HEPATITIS [None]
  - COLITIS [None]
  - SKIN INFECTION [None]
  - LARGE INTESTINE PERFORATION [None]
